FAERS Safety Report 24363044 (Version 2)
Quarter: 2024Q4

REPORT INFORMATION
  Report Type: Spontaneous
  Country: US (occurrence: US)
  Receive Date: 20240925
  Receipt Date: 20241017
  Transmission Date: 20250115
  Serious: No
  Sender: SUNOVION
  Company Number: US-SUMITOMO PHARMA SWITZERLAND GMBH-2024SPA002406

PATIENT
  Sex: Female
  Weight: 79.365 kg

DRUGS (1)
  1. GEMTESA [Suspect]
     Active Substance: VIBEGRON
     Indication: Urinary incontinence
     Dosage: 75 MG, QD (TAKEN ONCE A DAY)
     Route: 048

REACTIONS (2)
  - Urinary incontinence [Unknown]
  - Therapy interrupted [Unknown]
